FAERS Safety Report 7275389-9 (Version None)
Quarter: 2011Q1

REPORT INFORMATION
  Report Type: 
  Country: None (occurrence: None)
  Receive Date: 20110204
  Receipt Date: 20110131
  Transmission Date: 20110831
  Serious: Yes (Death, Life-Threatening, Other)
  Sender: FDA-Public Use
  Company Number: GB-ROCHE-756322

PATIENT

DRUGS (1)
  1. CAPECITABINE [Suspect]
     Route: 048

REACTIONS (11)
  - DEATH [None]
  - DIARRHOEA [None]
  - CONSTIPATION [None]
  - INSOMNIA [None]
  - FATIGUE [None]
  - PAIN [None]
  - PALMAR-PLANTAR ERYTHRODYSAESTHESIA SYNDROME [None]
  - MUCOSAL INFLAMMATION [None]
  - VOMITING [None]
  - CARDIAC DISORDER [None]
  - NAUSEA [None]
